FAERS Safety Report 15863643 (Version 3)
Quarter: 2019Q1

REPORT INFORMATION
  Report Type: Spontaneous
  Country: CN (occurrence: CN)
  Receive Date: 20190124
  Receipt Date: 20190304
  Transmission Date: 20190417
  Serious: Yes (Other)
  Sender: FDA-Public Use
  Company Number: CN-PFIZER INC-2019030972

PATIENT
  Age: 59 Year
  Sex: Male

DRUGS (5)
  1. METHOTREXATE SODIUM. [Suspect]
     Active Substance: METHOTREXATE SODIUM
     Indication: LYMPHOMA
     Dosage: 1.7 G, UNK
     Route: 041
  2. CISPLATIN. [Suspect]
     Active Substance: CISPLATIN
     Indication: LYMPHOMA
     Dosage: 100 MG, UNK
  3. GEMCITABINE [Suspect]
     Active Substance: GEMCITABINE\GEMCITABINE HYDROCHLORIDE
     Indication: LYMPHOMA
     Dosage: 1.7 G, UNK
  4. PEGASPARGASE [Suspect]
     Active Substance: PEGASPARGASE
     Indication: LYMPHOMA
     Dosage: 3750 IU, UNK
  5. DEXAMETHASONE. [Suspect]
     Active Substance: DEXAMETHASONE
     Indication: LYMPHOMA
     Dosage: 40 MG, UNK

REACTIONS (13)
  - Hypoaesthesia [Unknown]
  - Nuchal rigidity [Unknown]
  - Headache [Unknown]
  - Nausea [Recovering/Resolving]
  - Dizziness [Unknown]
  - Somnolence [Unknown]
  - Urinary retention [Unknown]
  - Deafness [Unknown]
  - Febrile neutropenia [Unknown]
  - Vomiting [Recovering/Resolving]
  - Condition aggravated [Not Recovered/Not Resolved]
  - Dysarthria [Not Recovered/Not Resolved]
  - Muscular weakness [Unknown]
